FAERS Safety Report 22655613 (Version 1)
Quarter: 2023Q2

REPORT INFORMATION
  Report Type: Spontaneous
  Country: US (occurrence: None)
  Receive Date: 20230629
  Receipt Date: 20230629
  Transmission Date: 20230721
  Serious: No
  Sender: FDA-Public Use
  Company Number: None

PATIENT
  Age: 70 Year
  Sex: Female
  Weight: 87.5 kg

DRUGS (1)
  1. TEPEZZA [Suspect]
     Active Substance: TEPROTUMUMAB-TRBW
     Indication: Endocrine ophthalmopathy
     Dosage: 1760 MG EVERY 3 WEEKS INTRAVENOUS?
     Route: 042
     Dates: start: 20230502

REACTIONS (15)
  - Fatigue [None]
  - Rash [None]
  - Abdominal discomfort [None]
  - Nail disorder [None]
  - Muscle spasms [None]
  - Taste disorder [None]
  - Sensation of foreign body [None]
  - Infusion related reaction [None]
  - Gingival recession [None]
  - Loose tooth [None]
  - Tooth discolouration [None]
  - Therapy interrupted [None]
  - Dental examination abnormal [None]
  - Periodontal disease [None]
  - Dysgeusia [None]

NARRATIVE: CASE EVENT DATE: 20230615
